FAERS Safety Report 24133093 (Version 1)
Quarter: 2024Q3

REPORT INFORMATION
  Report Type: Spontaneous
  Country: US (occurrence: US)
  Receive Date: 20240724
  Receipt Date: 20240724
  Transmission Date: 20241016
  Serious: Yes (Hospitalization, Other)
  Sender: GLENMARK
  Company Number: US-MLMSERVICE-20240710-PI120627-00177-1

PATIENT

DRUGS (8)
  1. HYDROCORTISONE BUTYRATE [Interacting]
     Active Substance: HYDROCORTISONE BUTYRATE
     Indication: Steroid therapy
     Dosage: 15 MILLIGRAM, TID (YELLOW ZONE)
     Route: 065
  2. HYDROCORTISONE BUTYRATE [Interacting]
     Active Substance: HYDROCORTISONE BUTYRATE
     Dosage: 100 MILLIGRAM, TID (RED ZONE)
     Route: 042
  3. HYDROCORTISONE BUTYRATE [Interacting]
     Active Substance: HYDROCORTISONE BUTYRATE
     Dosage: 5 MILLIGRAM, TID (GREEN ZONE)
     Route: 065
  4. MITOTANE [Interacting]
     Active Substance: MITOTANE
     Indication: Adrenocortical carcinoma
     Dosage: UNK
     Route: 065
  5. FLUDROCORTISONE [Interacting]
     Active Substance: FLUDROCORTISONE
     Indication: Steroid therapy
     Dosage: 0.1 MILLIGRAM, QD
     Route: 065
  6. ETOPOSIDE [Concomitant]
     Active Substance: ETOPOSIDE
     Indication: Adrenocortical carcinoma
     Dosage: UNK
     Route: 065
  7. DOXORUBICIN [Concomitant]
     Active Substance: DOXORUBICIN
     Indication: Adrenocortical carcinoma
     Dosage: UNK
     Route: 065
  8. CISPLATIN [Concomitant]
     Active Substance: CISPLATIN
     Indication: Adrenocortical carcinoma
     Dosage: UNK
     Route: 065

REACTIONS (3)
  - Hypotension [Unknown]
  - Drug interaction [Unknown]
  - Adrenocortical insufficiency acute [Unknown]
